FAERS Safety Report 7532480-7 (Version None)
Quarter: 2011Q2

REPORT INFORMATION
  Report Type: 
  Country: None (occurrence: None)
  Receive Date: 20110608
  Receipt Date: 20110526
  Transmission Date: 20111010
  Serious: Yes (Hospitalization, Other)
  Sender: FDA-Public Use
  Company Number: PHHY2011PL45423

PATIENT
  Sex: Male

DRUGS (1)
  1. TASIGNA [Suspect]
     Dosage: 400 MG, DAILY
     Route: 048
     Dates: start: 20110303, end: 20110518

REACTIONS (4)
  - PLATELET COUNT DECREASED [None]
  - ANAEMIA [None]
  - HAEMOGLOBIN DECREASED [None]
  - ISCHAEMIA [None]
